FAERS Safety Report 6322438-8 (Version None)
Quarter: 2009Q3

REPORT INFORMATION
  Report Type: 
  Country: None (occurrence: None)
  Receive Date: 20090824
  Receipt Date: 20090213
  Transmission Date: 20100115
  Serious: No
  Sender: FDA-Public Use
  Company Number: US-ABBOTT-09P-163-0502491-00

PATIENT
  Sex: Male

DRUGS (7)
  1. NIASPAN [Suspect]
     Indication: DRUG USE FOR UNKNOWN INDICATION
  2. NIASPAN [Suspect]
     Dosage: TITRATED TO 1000 MGS
  3. SIMCOR [Suspect]
     Indication: LOW DENSITY LIPOPROTEIN INCREASED
     Dosage: 500MG/20MG
  4. ASPIRIN [Concomitant]
     Indication: DRUG USE FOR UNKNOWN INDICATION
  5. BC POWDER [Concomitant]
     Indication: HEADACHE
  6. PSEUDOPHRINE [Concomitant]
     Indication: SINUS CONGESTION
  7. BENADRYL [Concomitant]
     Indication: DRUG USE FOR UNKNOWN INDICATION
     Dosage: IF UNABLE TO TAKE ASA PRIOR TO NIASPANPSEUDOPHRINE PRODUCT)

REACTIONS (3)
  - FLUSHING [None]
  - LOW DENSITY LIPOPROTEIN INCREASED [None]
  - SKIN BURNING SENSATION [None]
